FAERS Safety Report 21112229 (Version 3)
Quarter: 2023Q4

REPORT INFORMATION
  Report Type: Spontaneous
  Country: US (occurrence: US)
  Receive Date: 20220721
  Receipt Date: 20231215
  Transmission Date: 20240110
  Serious: Yes (Hospitalization)
  Sender: FDA-Public Use
  Company Number: US-PFIZER INC-PV202200026527

PATIENT
  Age: 80 Year
  Sex: Female
  Weight: 56.33 kg

DRUGS (2)
  1. LORBRENA [Suspect]
     Active Substance: LORLATINIB
     Dosage: 100 MG, ALTERNATE DAY (1 P.O. ONCE EVERY OTHER DAY)
     Route: 048
  2. LORBRENA [Suspect]
     Active Substance: LORLATINIB
     Dosage: 50 MG, 1X/DAY (2 P.O. ONCE A DAY)
     Route: 048

REACTIONS (2)
  - Mental disorder [Unknown]
  - Off label use [Unknown]
